FAERS Safety Report 14641139 (Version 1)
Quarter: 2018Q1

REPORT INFORMATION
  Report Type: Spontaneous
  Country: FR (occurrence: FR)
  Receive Date: 20180315
  Receipt Date: 20180315
  Transmission Date: 20180509
  Serious: Yes (Hospitalization, Other)
  Sender: FDA-Public Use
  Company Number: FR-JNJFOC-20180316150

PATIENT
  Age: 38 Year
  Sex: Female

DRUGS (5)
  1. LEVOFLOXACIN. [Suspect]
     Active Substance: LEVOFLOXACIN
     Indication: PULMONARY TUBERCULOSIS
     Dosage: 1-0-0
     Route: 048
     Dates: start: 20170421, end: 20171123
  2. DEXAMBUTOL [Suspect]
     Active Substance: ETHAMBUTOL HYDROCHLORIDE
     Indication: PULMONARY TUBERCULOSIS
     Route: 048
     Dates: start: 20170421, end: 20180110
  3. SIRTURO [Suspect]
     Active Substance: BEDAQUILINE FUMARATE
     Indication: PULMONARY TUBERCULOSIS
     Dosage: 600 MG 1 WEEK
     Route: 048
     Dates: start: 20170421
  4. PIRILENE [Suspect]
     Active Substance: PYRAZINAMIDE
     Indication: PULMONARY TUBERCULOSIS
     Dosage: STRENGTH: 500 MG
     Route: 048
     Dates: start: 20170421
  5. LINEZOLIDE [Suspect]
     Active Substance: LINEZOLID
     Indication: PULMONARY TUBERCULOSIS
     Dosage: 1-0-0
     Route: 048
     Dates: start: 20170421

REACTIONS (3)
  - Visual acuity reduced [Not Recovered/Not Resolved]
  - Axonal neuropathy [Not Recovered/Not Resolved]
  - Optic neuropathy [Not Recovered/Not Resolved]

NARRATIVE: CASE EVENT DATE: 201708
